FAERS Safety Report 6001216-3 (Version None)
Quarter: 2008Q4

REPORT INFORMATION
  Report Type: 
  Country: None (occurrence: None)
  Receive Date: 20081215
  Receipt Date: 20071102
  Transmission Date: 20090506
  Serious: No
  Sender: FDA-Public Use
  Company Number: US-AMGEN-KDL250926

PATIENT
  Sex: Female

DRUGS (1)
  1. ENBREL [Suspect]
     Indication: RHEUMATOID ARTHRITIS
     Route: 058
     Dates: start: 20070801

REACTIONS (6)
  - CANDIDIASIS [None]
  - CONTUSION [None]
  - JOINT SWELLING [None]
  - PRURITUS [None]
  - URINARY TRACT INFECTION [None]
  - URTICARIA [None]
